FAERS Safety Report 5726208-0 (Version None)
Quarter: 2008Q2

REPORT INFORMATION
  Report Type: 
  Country: None (occurrence: None)
  Receive Date: 20080502
  Receipt Date: 20080422
  Transmission Date: 20081010
  Serious: Yes (Other)
  Sender: FDA-Public Use
  Company Number: US-JNJFOC-20080407283

PATIENT
  Sex: Female
  Weight: 81.65 kg

DRUGS (25)
  1. MOTRIN [Suspect]
     Indication: PAIN
     Route: 048
  2. ADDERALL XR 10 [Concomitant]
  3. ACTONEL [Concomitant]
     Indication: BONE DENSITY DECREASED
  4. AGGRENOX [Concomitant]
     Indication: CEREBROVASCULAR ACCIDENT PROPHYLAXIS
     Dosage: 25/200 CAPSULES TWICE A DAY
  5. ASPIRIN [Concomitant]
     Indication: CARDIAC DISORDER
  6. CLONAZEPAM [Concomitant]
     Indication: ANXIETY
  7. COGENTIN [Concomitant]
  8. COMBIVENT [Concomitant]
     Indication: CHRONIC OBSTRUCTIVE PULMONARY DISEASE
  9. DOCUSATE [Concomitant]
     Indication: GASTROINTESTINAL DISORDER
  10. EFFEXOR [Concomitant]
     Indication: DEPRESSION
  11. FUROSEMIDE [Concomitant]
     Indication: OEDEMA
  12. INVEGA [Concomitant]
     Indication: PSYCHOTIC DISORDER
     Dosage: 12 MG AT BED TIME AND 3 MG IN MORNING
  13. LEVOTHROID [Concomitant]
     Indication: THYROID DISORDER
  14. METFORMIN HCL [Concomitant]
     Indication: DIABETES MELLITUS
  15. METOPROLOL TARTRATE [Concomitant]
     Indication: TACHYCARDIA
  16. OXYCODONE HCL [Concomitant]
     Indication: PAIN
  17. PRENATAL PLUS [Concomitant]
  18. EVOXAC [Concomitant]
     Indication: SJOGREN'S SYNDROME
  19. PREVACID [Concomitant]
     Indication: GASTROOESOPHAGEAL REFLUX DISEASE
  20. PSEUDOEPHEDRINE HCL [Concomitant]
     Indication: HYPERSENSITIVITY
  21. TOPAMAX [Concomitant]
     Dosage: 200 MG AT BED TIME AND 100 MG IN THE MORNING
  22. VITAMIN B-12 [Concomitant]
  23. VITAMIN D [Concomitant]
  24. WELCHOL [Concomitant]
     Indication: BLOOD CHOLESTEROL ABNORMAL
  25. CARISOPRODOL [Concomitant]

REACTIONS (4)
  - GASTROINTESTINAL DISORDER [None]
  - SPLENOMEGALY [None]
  - STOMACH DISCOMFORT [None]
  - WEIGHT DECREASED [None]
